FAERS Safety Report 4686880-3 (Version None)
Quarter: 2005Q2

REPORT INFORMATION
  Report Type: 
  Country: None (occurrence: None)
  Receive Date: 20050609
  Receipt Date: 20050310
  Transmission Date: 20051028
  Serious: Yes (Hospitalization, Other)
  Sender: FDA-Public Use
  Company Number: US-MERCK-0503USA02070

PATIENT
  Age: 65 Year
  Sex: Male
  Weight: 105 kg

DRUGS (15)
  1. VIOXX [Suspect]
     Indication: OSTEOARTHRITIS
     Route: 048
     Dates: start: 19990816, end: 20030101
  2. VIOXX [Suspect]
     Indication: MYALGIA
     Route: 048
     Dates: start: 19990816, end: 20030101
  3. AMARYL [Concomitant]
     Route: 065
  4. GLUCOPHAGE [Concomitant]
     Route: 065
  5. AVANDIA [Concomitant]
     Route: 065
  6. ALLOPURINOL [Concomitant]
     Route: 065
  7. PRAVACHOL [Concomitant]
     Route: 065
  8. PROPOXYPHENE HYDROCHLORIDE [Concomitant]
     Route: 065
  9. VITAMIN E [Concomitant]
     Route: 065
  10. MULTIVITAMIN [Concomitant]
     Route: 065
  11. GLUCOSAMINE [Concomitant]
     Route: 065
  12. CHONDROITIN [Concomitant]
     Route: 065
  13. LIPITOR [Concomitant]
     Route: 065
  14. NEUROTONIN CAPSULES [Concomitant]
     Route: 065
  15. LANTUS [Concomitant]
     Route: 065

REACTIONS (18)
  - ARTHRALGIA [None]
  - BENIGN PROSTATIC HYPERPLASIA [None]
  - BLOOD CHOLESTEROL INCREASED [None]
  - CEREBROVASCULAR ACCIDENT [None]
  - CHEST PAIN [None]
  - CONVULSION [None]
  - DYSPHAGIA [None]
  - GASTROOESOPHAGEAL REFLUX DISEASE [None]
  - HAEMATURIA [None]
  - HYPOACUSIS [None]
  - INTERVERTEBRAL DISC DEGENERATION [None]
  - PANIC DISORDER [None]
  - POLYNEUROPATHY [None]
  - SALIVARY GLAND CALCULUS [None]
  - TRANSIENT ISCHAEMIC ATTACK [None]
  - URINARY TRACT INFECTION [None]
  - VENTRICULAR HYPERTROPHY [None]
  - VERTIGO POSITIONAL [None]
